FAERS Safety Report 6954088 (Version 8)
Quarter: 2023Q2

REPORT INFORMATION
  Report Type: Spontaneous
  Country: JP (occurrence: JP)
  Receive Date: 20090327
  Receipt Date: 20230501
  Transmission Date: 20230722
  Serious: Yes (Life-Threatening)
  Sender: FDA-Public Use
  Company Number: JP-PFIZER INC-2009186536

PATIENT

DRUGS (13)
  1. AMLODIPINE BESYLATE [Interacting]
     Active Substance: AMLODIPINE BESYLATE
     Indication: Hypertension
     Dosage: 5 MG, 1X/DAY
     Route: 048
     Dates: start: 20070319, end: 20070319
  2. AMLODIPINE BESYLATE [Interacting]
     Active Substance: AMLODIPINE BESYLATE
     Dosage: 10 MG, 1X/DAY REGIMEN DOSE UNIT: MILLIGRAM
     Route: 048
     Dates: start: 20070319
  3. ATENOLOL [Interacting]
     Active Substance: ATENOLOL
     Indication: Hypertension
     Dosage: 50 MG, 1X/DAY
     Route: 048
     Dates: start: 20051205, end: 20061001
  4. ATENOLOL [Interacting]
     Active Substance: ATENOLOL
     Dosage: 100 MG, 1X/DAY REGIMEN DOSE UNIT: MILLIGRAM
     Route: 048
     Dates: start: 20061002
  5. CANDESARTAN CILEXETIL [Interacting]
     Active Substance: CANDESARTAN CILEXETIL
     Indication: Hypertension
     Dosage: 12 MG, 1X/DAY REGIMEN DOSE UNIT: MILLIGRAM
     Route: 048
     Dates: start: 20051227
  6. ASPIRIN [Concomitant]
     Active Substance: ASPIRIN
     Indication: Product used for unknown indication
     Dosage: 100 MG, 1X/DAY REGIMEN DOSE UNIT: MILLIGRAM
     Route: 048
     Dates: start: 20020723
  7. CLARITHROMYCIN [Concomitant]
     Active Substance: CLARITHROMYCIN
     Indication: Product used for unknown indication
     Dosage: 200 MG, 1X/DAY REGIMEN DOSE UNIT: MILLIGRAM
     Route: 048
     Dates: start: 20061030
  8. LEVOTHYROXINE SODIUM [Concomitant]
     Active Substance: LEVOTHYROXINE SODIUM
     Indication: Thyroid cancer
     Dosage: 50 UG, 1X/DAY REGIMEN DOSE UNIT: MICROGRAM
     Route: 048
     Dates: start: 20061127
  9. LEVOTHYROXINE SODIUM [Concomitant]
     Active Substance: LEVOTHYROXINE SODIUM
     Indication: Goitre
  10. LEVOTHYROXINE SODIUM [Concomitant]
     Active Substance: LEVOTHYROXINE SODIUM
     Indication: Neoplasm malignant
  11. DEPAS [Concomitant]
     Indication: Product used for unknown indication
     Dosage: 1 MG, 1X/DAY REGIMEN DOSE UNIT: MILLIGRAM
     Route: 048
     Dates: start: 20070115
  12. SEREVENT DISKUS [Concomitant]
     Active Substance: SALMETEROL XINAFOATE
     Indication: Product used for unknown indication
     Dosage: 1 DF, 2X/DAY REGIMEN DOSE UNIT: DOSAGE FORM
     Dates: start: 20070219
  13. OMEPRAZOLE [Concomitant]
     Active Substance: OMEPRAZOLE
     Indication: Product used for unknown indication
     Dosage: 20 MG, 1X/DAY REGIMEN DOSE UNIT: MILLIGRAM
     Route: 048
     Dates: start: 20071210

REACTIONS (6)
  - Drug interaction [Unknown]
  - Acute kidney injury [Recovered/Resolved]
  - Hyperkalaemia [Unknown]
  - Shock [Unknown]
  - Atrial fibrillation [Unknown]
  - Bradycardia [Unknown]

NARRATIVE: CASE EVENT DATE: 20090315
